FAERS Safety Report 4704063-5 (Version None)
Quarter: 2005Q2

REPORT INFORMATION
  Report Type: 
  Country: None (occurrence: None)
  Receive Date: 20050630
  Receipt Date: 20050614
  Transmission Date: 20051028
  Serious: Yes (Hospitalization, Other)
  Sender: FDA-Public Use
  Company Number: PHEH2005US06757

PATIENT
  Age: 72 Year
  Sex: Male
  Weight: 30 kg

DRUGS (2)
  1. ZOMETA [Suspect]
     Indication: METASTASES TO BONE
     Dosage: 4 MG, MONTHLY
     Route: 042
     Dates: start: 20031211, end: 20050419
  2. ELIGARD [Concomitant]
     Dosage: 22.5 MG, Q 4 MONTH

REACTIONS (5)
  - ASEPTIC NECROSIS BONE [None]
  - OSTEOLYSIS [None]
  - PAIN IN JAW [None]
  - PATHOLOGICAL FRACTURE [None]
  - SWELLING [None]
